FAERS Safety Report 26123748 (Version 2)
Quarter: 2025Q4

REPORT INFORMATION
  Report Type: Report from Study
  Country: CA (occurrence: CA)
  Receive Date: 20251205
  Receipt Date: 20251215
  Transmission Date: 20260117
  Serious: Yes (Other)
  Sender: CELLTRION
  Company Number: CA-CELLTRION INC.-2025CA030564

PATIENT

DRUGS (4)
  1. INFLIXIMAB-DYYB [Suspect]
     Active Substance: INFLIXIMAB-DYYB
     Indication: Crohn^s disease
     Dosage: MAINTENANCE - 10 MG/KG - IV  (INTRAVENOUS) EVERY 6 WEEKS
     Route: 042
     Dates: start: 20250717
  2. INFLIXIMAB-DYYB [Suspect]
     Active Substance: INFLIXIMAB-DYYB
     Dosage: MAINTENANCE - 10 MG/KG - IV  (INTRAVENOUS) EVERY 6 WEEKS
     Route: 042
     Dates: start: 20251017
  3. INFLIXIMAB-DYYB [Suspect]
     Active Substance: INFLIXIMAB-DYYB
     Dosage: MAINTENANCE - 10 MG/KG - IV  (INTRAVENOUS) EVERY 6 WEEKS
     Route: 042
     Dates: start: 20251127
  4. INFLIXIMAB-DYYB [Suspect]
     Active Substance: INFLIXIMAB-DYYB
     Dosage: MAINTENANCE - 10 MG/KG - IV  (INTRAVENOUS) EVERY 6 WEEKS
     Route: 042
     Dates: start: 20250717, end: 202512

REACTIONS (5)
  - Crohn^s disease [Unknown]
  - Insomnia [Unknown]
  - Pain [Unknown]
  - Inappropriate schedule of product administration [Unknown]
  - Off label use [Unknown]

NARRATIVE: CASE EVENT DATE: 20250101
